FAERS Safety Report 11849126 (Version 2)
Quarter: 2016Q3

REPORT INFORMATION
  Report Type: Spontaneous
  Country: AU (occurrence: AU)
  Receive Date: 20151218
  Receipt Date: 20160922
  Transmission Date: 20161109
  Serious: Yes (Hospitalization, Other)
  Sender: FDA-Public Use
  Company Number: AU-AMGEN-AUSSP2015135440

PATIENT
  Age: 57 Year
  Sex: Female

DRUGS (1)
  1. ENBREL [Suspect]
     Active Substance: ETANERCEPT
     Indication: RHEUMATOID ARTHRITIS
     Dosage: AI 50 MG, WEEKLY
     Route: 065

REACTIONS (8)
  - Loss of consciousness [Unknown]
  - Ear haemorrhage [Unknown]
  - Rib fracture [Unknown]
  - Confusional state [Unknown]
  - Infection [Unknown]
  - Haematoma [Unknown]
  - Traumatic lung injury [Unknown]
  - Road traffic accident [Unknown]

NARRATIVE: CASE EVENT DATE: 20151021
